FAERS Safety Report 5772039-5 (Version None)
Quarter: 2008Q2

REPORT INFORMATION
  Report Type: 
  Country: None (occurrence: None)
  Receive Date: 20080613
  Receipt Date: 20080611
  Transmission Date: 20081010
  Serious: No
  Sender: FDA-Public Use
  Company Number: BE-ASTRAZENECA-2008AC01484

PATIENT
  Age: 17 Year
  Sex: Female

DRUGS (1)
  1. SEROQUEL [Suspect]
     Route: 048
     Dates: start: 20070901

REACTIONS (2)
  - LEUKOPENIA [None]
  - NEUTROPENIA [None]
